FAERS Safety Report 6519730-0 (Version None)
Quarter: 2009Q4

REPORT INFORMATION
  Report Type: 
  Country: None (occurrence: None)
  Receive Date: 20091228
  Receipt Date: 20091228
  Transmission Date: 20100525
  Serious: No
  Sender: FDA-Public Use
  Company Number: None

PATIENT
  Age: 31 Year
  Sex: Female

DRUGS (2)
  1. COLISTIN 150MG [Suspect]
     Indication: OSTEOMYELITIS
     Dosage: 100MG Q8H PO
     Route: 047
  2. VANCOMYCIN [Suspect]
     Dosage: 1000MG Q12H PO
     Route: 048

REACTIONS (3)
  - ACINETOBACTER INFECTION [None]
  - BLOOD CREATININE INCREASED [None]
  - EXTRADURAL ABSCESS [None]
